FAERS Safety Report 6368782-X (Version None)
Quarter: 2009Q3

REPORT INFORMATION
  Report Type: 
  Country: None (occurrence: None)
  Receive Date: 20090922
  Receipt Date: 20090911
  Transmission Date: 20100115
  Serious: No
  Sender: FDA-Public Use
  Company Number: US-B.I. PHARMACEUTICALS,INC./RIDGEFIELD-2009-BP-09174BP

PATIENT
  Sex: Female

DRUGS (10)
  1. SPIRIVA [Suspect]
     Indication: CHRONIC OBSTRUCTIVE PULMONARY DISEASE
     Dosage: 18 MCG
     Route: 055
     Dates: start: 20060101
  2. SYMBICORT [Suspect]
     Indication: CHRONIC OBSTRUCTIVE PULMONARY DISEASE
     Route: 055
  3. PROAIR HFA [Concomitant]
     Indication: CHRONIC OBSTRUCTIVE PULMONARY DISEASE
  4. PROAIR HFA [Concomitant]
     Indication: DYSPNOEA
  5. OMEPRAZOLE [Concomitant]
  6. VITAMIN [Concomitant]
  7. GLUCOSAMINE/CHONDRIOTIN [Concomitant]
  8. CALCIUM W/ D [Concomitant]
  9. ASPIRIN [Concomitant]
     Dosage: 81 MG
  10. ASCORBIC ACID [Concomitant]
     Dosage: 500 MG

REACTIONS (3)
  - BARRETT'S OESOPHAGUS [None]
  - COUGH [None]
  - DYSPHONIA [None]
